FAERS Safety Report 21393069 (Version 1)
Quarter: 2022Q3

REPORT INFORMATION
  Report Type: Spontaneous
  Country: CA (occurrence: CA)
  Receive Date: 20220929
  Receipt Date: 20220929
  Transmission Date: 20221026
  Serious: Yes (Life-Threatening, Hospitalization, Other)
  Sender: FDA-Public Use
  Company Number: CA-GILEAD-2022-0599523

PATIENT
  Age: 91 Year
  Sex: Female

DRUGS (9)
  1. VEKLURY [Suspect]
     Active Substance: REMDESIVIR
     Indication: Product used for unknown indication
     Dosage: 200 MG
     Route: 065
  2. AMLODIPINE [Concomitant]
     Active Substance: AMLODIPINE BESYLATE
  3. VITAMINS [Concomitant]
     Active Substance: VITAMINS
  4. ELIQUIS [Concomitant]
     Active Substance: APIXABAN
  5. FLECAINIDE [Concomitant]
     Active Substance: FLECAINIDE
  6. FOLIC ACID [Concomitant]
     Active Substance: FOLIC ACID
  7. METHOTREXATE [Concomitant]
     Active Substance: METHOTREXATE
  8. PENTASA [Concomitant]
     Active Substance: MESALAMINE
  9. PERINDOPRIL [Concomitant]
     Active Substance: PERINDOPRIL

REACTIONS (5)
  - Anaphylactic reaction [Recovered/Resolved]
  - Hypotension [Recovered/Resolved]
  - Hypoxia [Recovered/Resolved]
  - Infusion site rash [Recovered/Resolved]
  - Rash macular [Recovered/Resolved]
